FAERS Safety Report 7716117-X (Version None)
Quarter: 2011Q3

REPORT INFORMATION
  Report Type: 
  Country: None (occurrence: None)
  Receive Date: 20110829
  Receipt Date: 20110815
  Transmission Date: 20111222
  Serious: Yes (Death, Hospitalization)
  Sender: FDA-Public Use
  Company Number: US-GLAXOSMITHKLINE-B0741785A

PATIENT
  Age: 73 Year
  Sex: Male

DRUGS (11)
  1. AVANDIA [Suspect]
     Indication: DIABETES MELLITUS
     Dosage: 4MG TWICE PER DAY
     Route: 048
     Dates: start: 20030401, end: 20051001
  2. COZAAR [Concomitant]
  3. DIGOXIN [Concomitant]
  4. ALIMTA [Concomitant]
  5. TOPROL-XL [Concomitant]
  6. INSULIN [Concomitant]
  7. NIASPAN [Concomitant]
  8. ALBUTEROL SULFATE AUTOHALER [Concomitant]
  9. ATROVENT [Concomitant]
  10. ZOCOR [Concomitant]
  11. HYDROCHLOROTHIAZIDE [Concomitant]

REACTIONS (2)
  - MYOCARDIAL INFARCTION [None]
  - CARDIAC FAILURE CONGESTIVE [None]
